FAERS Safety Report 25416978 (Version 1)
Quarter: 2025Q2

REPORT INFORMATION
  Report Type: Spontaneous
  Country: FR (occurrence: FR)
  Receive Date: 20250610
  Receipt Date: 20250610
  Transmission Date: 20250716
  Serious: Yes (Hospitalization)
  Sender: SANOFI AVENTIS
  Company Number: None

PATIENT
  Age: 67 Year
  Sex: Male
  Weight: 79 kg

DRUGS (1)
  1. DUPIXENT [Suspect]
     Active Substance: DUPILUMAB
     Indication: Asthma
     Dosage: 1 DF, QOW
     Route: 058
     Dates: start: 20220615

REACTIONS (2)
  - Influenza [Recovered/Resolved]
  - Asthma [Recovered/Resolved]

NARRATIVE: CASE EVENT DATE: 20240206
